FAERS Safety Report 15155536 (Version 2)
Quarter: 2018Q3

REPORT INFORMATION
  Report Type: Spontaneous
  Country: FR (occurrence: FR)
  Receive Date: 20180717
  Receipt Date: 20180808
  Transmission Date: 20181010
  Serious: Yes (Hospitalization, Other)
  Sender: FDA-Public Use
  Company Number: FR-009507513-1807FRA006917

PATIENT
  Sex: Male

DRUGS (1)
  1. JANUVIA [Suspect]
     Active Substance: SITAGLIPTIN PHOSPHATE
     Dosage: (STRENGTH: 50 UNITS NOT REPORTED)
     Route: 048

REACTIONS (3)
  - Wrist surgery [Unknown]
  - Renal failure [Unknown]
  - Elbow operation [Unknown]
